FAERS Safety Report 19384519 (Version 1)
Quarter: 2021Q2

REPORT INFORMATION
  Report Type: Spontaneous
  Country: US (occurrence: US)
  Receive Date: 20210608
  Receipt Date: 20210608
  Transmission Date: 20210717
  Serious: Yes (Death, Hospitalization, Other)
  Sender: FDA-Public Use
  Company Number: US-STRIDES ARCOLAB LIMITED-2021SP006166

PATIENT
  Age: 86 Year
  Sex: Female

DRUGS (4)
  1. AZATHIOPRINE. [Suspect]
     Active Substance: AZATHIOPRINE
     Dosage: UNK, REDUCED DOSE
     Route: 065
  2. PREDNISOLONE. [Suspect]
     Active Substance: PREDNISOLONE
     Indication: RETINAL VASCULITIS
     Dosage: UNK, REDUCED DOSE
     Route: 065
  3. PREDNISOLONE. [Suspect]
     Active Substance: PREDNISOLONE
     Indication: SYSTEMIC SCLERODERMA
     Dosage: 15 MILLIGRAM PER DAY
     Route: 065
  4. AZATHIOPRINE. [Suspect]
     Active Substance: AZATHIOPRINE
     Indication: SYSTEMIC SCLERODERMA
     Dosage: 100 MILLIGRAM PER DAY
     Route: 065

REACTIONS (6)
  - Enterobacter infection [Fatal]
  - Infection reactivation [Recovered/Resolved]
  - Disseminated cytomegaloviral infection [Unknown]
  - Off label use [Unknown]
  - Septic shock [Fatal]
  - American trypanosomiasis [Recovered/Resolved]
